FAERS Safety Report 8857670 (Version 1)
Quarter: 2012Q4

REPORT INFORMATION
  Report Type: 
  Country: IT (occurrence: IT)
  Receive Date: 20121024
  Receipt Date: 20121024
  Transmission Date: 20130627
  Serious: Yes (Hospitalization)
  Sender: FDA-Public Use
  Company Number: IT-PFIZER INC-2012264313

PATIENT
  Age: 68 Year
  Sex: Male

DRUGS (2)
  1. ATENOLOL [Suspect]
     Dosage: 25 mg, 1x/day
     Route: 048
     Dates: start: 20080101, end: 20121008
  2. RYTMONORM [Interacting]
     Dosage: 325 mg, 2x/day
     Route: 048
     Dates: start: 20080101

REACTIONS (3)
  - Drug interaction [Unknown]
  - Atrial fibrillation [Unknown]
  - Palpitations [Unknown]
